FAERS Safety Report 23216600 (Version 7)
Quarter: 2024Q2

REPORT INFORMATION
  Report Type: Report from Study
  Country: US (occurrence: US)
  Receive Date: 20231122
  Receipt Date: 20240529
  Transmission Date: 20240716
  Serious: Yes (Hospitalization, Other)
  Sender: FDA-Public Use
  Company Number: US-UCBSA-2023051443

PATIENT
  Sex: Male

DRUGS (8)
  1. FINTEPLA [Suspect]
     Active Substance: FENFLURAMINE
     Indication: Lennox-Gastaut syndrome
     Dosage: 3 MILLILITER, 2X/DAY (BID)
     Dates: start: 20230818
  2. FINTEPLA [Suspect]
     Active Substance: FENFLURAMINE
     Dosage: 1 ML IN THE MORNINIG, 2 ML IN THE AFTERNOON, 3 ML AT NIGHT
     Dates: start: 20231101
  3. FINTEPLA [Suspect]
     Active Substance: FENFLURAMINE
     Dosage: 1 ML IN AM, 2 ML AT 2PM AND 3 ML AT BEDTIME
     Dates: start: 20231120
  4. FINTEPLA [Suspect]
     Active Substance: FENFLURAMINE
     Dosage: 1 ML IN MORNING, 2 ML IN AFTERNOON AND 3 ML AT BEDTIME
  5. FINTEPLA [Suspect]
     Active Substance: FENFLURAMINE
     Dosage: 1 ML IN MORNING, 2 ML IN AFTERNOON AND 3 ML AT BEDTIME
  6. FINTEPLA [Suspect]
     Active Substance: FENFLURAMINE
     Dosage: 1 ML IN MORNING, 2 ML IN AFTERNOON AND 3 ML AT BEDTIME
  7. TOPIRAMATE [Concomitant]
     Active Substance: TOPIRAMATE
     Indication: Product used for unknown indication
     Dosage: UNK
  8. TOPAMAX [Concomitant]
     Active Substance: TOPIRAMATE
     Indication: Product used for unknown indication
     Dosage: UNK

REACTIONS (17)
  - SARS-CoV-2 test positive [Not Recovered/Not Resolved]
  - Cough [Not Recovered/Not Resolved]
  - Vagal nerve stimulator implantation [Recovered/Resolved]
  - Pyrexia [Not Recovered/Not Resolved]
  - Respiratory tract congestion [Not Recovered/Not Resolved]
  - Febrile convulsion [Not Recovered/Not Resolved]
  - Atonic seizures [Not Recovered/Not Resolved]
  - Seizure [Not Recovered/Not Resolved]
  - Drug ineffective [Unknown]
  - Wisdom teeth removal [Not Recovered/Not Resolved]
  - Lethargy [Not Recovered/Not Resolved]
  - Weight decreased [Not Recovered/Not Resolved]
  - Decreased appetite [Not Recovered/Not Resolved]
  - Increased appetite [Not Recovered/Not Resolved]
  - Poor quality sleep [Not Recovered/Not Resolved]
  - Hypervigilance [Not Recovered/Not Resolved]
  - Off label use [Unknown]

NARRATIVE: CASE EVENT DATE: 20230101
